FAERS Safety Report 12169175 (Version 1)
Quarter: 2016Q1

REPORT INFORMATION
  Report Type: Spontaneous
  Country: US (occurrence: US)
  Receive Date: 20160310
  Receipt Date: 20160310
  Transmission Date: 20160526
  Serious: Yes (Other)
  Sender: FDA-Public Use
  Company Number: US-SA-2016SA046988

PATIENT
  Age: 52 Year
  Sex: Female

DRUGS (7)
  1. SYSTANE (HYPROMELLOSE 2910 (4000 MPA.S)) [Concomitant]
     Active Substance: HYPROMELLOSE 2910 (4000 MPA.S)
  2. AMOXICILLIN. [Concomitant]
     Active Substance: AMOXICILLIN
  3. LECITHIN [Concomitant]
     Active Substance: LECITHIN
     Dates: start: 20151210, end: 20160229
  4. AUBAGIO [Suspect]
     Active Substance: TERIFLUNOMIDE
     Indication: MULTIPLE SCLEROSIS
     Route: 048
  5. MINOCYCLINE HYDROCHLORIDE. [Concomitant]
     Active Substance: MINOCYCLINE HYDROCHLORIDE
     Dates: start: 20151210, end: 20160229
  6. AMLODIPINE BESILATE [Concomitant]
     Active Substance: AMLODIPINE BESYLATE
     Dates: start: 20160118, end: 20160229
  7. LISINOPRIL. [Concomitant]
     Active Substance: LISINOPRIL

REACTIONS (6)
  - Balance disorder [Unknown]
  - Fall [Unknown]
  - Loss of consciousness [Unknown]
  - Drug dose omission [Unknown]
  - Hypertension [Unknown]
  - Abasia [Unknown]
